FAERS Safety Report 5661811-8 (Version None)
Quarter: 2008Q1

REPORT INFORMATION
  Report Type: 
  Country: None (occurrence: None)
  Receive Date: 20080229
  Receipt Date: 20080219
  Transmission Date: 20080703
  Serious: Yes (Hospitalization)
  Sender: FDA-Public Use
  Company Number: WAES 0802USA03735

PATIENT
  Age: 68 Year
  Sex: Male
  Weight: 76.6579 kg

DRUGS (7)
  1. CAP VORINOSTAT UNK [Suspect]
     Dosage: 400 MG/DAILY/PO
     Route: 048
     Dates: start: 20080129, end: 20080211
  2. DECITABINE UNK [Suspect]
     Dosage: 20 MG/M[2/IV
     Route: 042
     Dates: start: 20080129, end: 20080202
  3. ASCORBIC ACID [Concomitant]
  4. CYANOCOBALAMIN [Concomitant]
  5. FOLIC ACID [Concomitant]
  6. GARLIC [Concomitant]
  7. VITAMINS (UNSPECIFIED) [Concomitant]

REACTIONS (4)
  - CHEST X-RAY ABNORMAL [None]
  - FEBRILE NEUTROPENIA [None]
  - INFECTION [None]
  - PLEURAL EFFUSION [None]
